FAERS Safety Report 4734417-2 (Version None)
Quarter: 2005Q3

REPORT INFORMATION
  Report Type: 
  Country: None (occurrence: None)
  Receive Date: 20050804
  Receipt Date: 20050726
  Transmission Date: 20060218
  Serious: Yes (Hospitalization)
  Sender: FDA-Public Use
  Company Number: RU-BRISTOL-MYERS SQUIBB COMPANY-13052097

PATIENT
  Sex: Female
  Weight: 74 kg

DRUGS (3)
  1. CISPLATIN [Suspect]
     Indication: BREAST CANCER
     Route: 042
     Dates: start: 20050602, end: 20050602
  2. GEMCITABINE HCL [Suspect]
     Indication: BREAST CANCER
     Route: 042
     Dates: start: 20050602, end: 20050602
  3. SENADE [Concomitant]
     Dates: start: 20050608, end: 20050608

REACTIONS (1)
  - TOXIC SKIN ERUPTION [None]
